FAERS Safety Report 12459131 (Version 1)
Quarter: 2016Q2

REPORT INFORMATION
  Report Type: Spontaneous
  Country: US (occurrence: US)
  Receive Date: 20160613
  Receipt Date: 20160613
  Transmission Date: 20160815
  Serious: Yes (Other)
  Sender: FDA-Public Use
  Company Number: US-AUROBINDO-AUR-APL-2016-07584

PATIENT

DRUGS (3)
  1. PREDNISONE. [Suspect]
     Active Substance: PREDNISONE
     Indication: NEUROPATHY PERIPHERAL
     Route: 065
  2. RITUXIMAB [Suspect]
     Active Substance: RITUXIMAB
     Dosage: 375 MG/M2, 4 TIMES A WEEK
     Route: 042
     Dates: start: 2012
  3. RITUXIMAB [Suspect]
     Active Substance: RITUXIMAB
     Indication: PRODUCT USED FOR UNKNOWN INDICATION
     Dosage: 375 MG/M2, 4 TIMES A WEEK
     Route: 042
     Dates: start: 2006

REACTIONS (7)
  - Musculoskeletal pain [Recovering/Resolving]
  - Escherichia infection [Recovering/Resolving]
  - Headache [Recovering/Resolving]
  - Osteomyelitis [Recovering/Resolving]
  - Extradural abscess [Recovering/Resolving]
  - Chills [Recovering/Resolving]
  - Neck pain [Recovering/Resolving]
